FAERS Safety Report 12471550 (Version 1)
Quarter: 2016Q2

REPORT INFORMATION
  Report Type: Report from Study
  Country: GB (occurrence: GB)
  Receive Date: 20160616
  Receipt Date: 20160616
  Transmission Date: 20160815
  Serious: Yes (Other)
  Sender: FDA-Public Use
  Company Number: GB-MDT-ADR-2016-01099

PATIENT
  Age: 51 Year
  Sex: Female

DRUGS (47)
  1. LIORESAL [Suspect]
     Active Substance: BACLOFEN
     Dosage: 465.8 MCG
     Route: 042
     Dates: start: 20150721, end: 20150721
  2. TIZANIDINE. [Concomitant]
     Active Substance: TIZANIDINE
     Indication: MUSCLE SPASTICITY
     Route: 048
     Dates: start: 20150713, end: 20150714
  3. TIZANIDINE. [Concomitant]
     Active Substance: TIZANIDINE
     Indication: MUSCLE SPASTICITY
     Dosage: 8 MG TID
     Route: 048
     Dates: start: 20150715, end: 20150717
  4. BACLOFEN. [Concomitant]
     Active Substance: BACLOFEN
     Indication: MUSCLE SPASTICITY
     Dosage: 30 MG TID
     Route: 048
     Dates: start: 20150713, end: 20150714
  5. BACLOFEN. [Concomitant]
     Active Substance: BACLOFEN
     Indication: MUSCLE SPASTICITY
     Route: 048
     Dates: start: 20150717, end: 20150720
  6. CITALOPRAM HYDROCHLORIDE [Concomitant]
     Active Substance: CITALOPRAM HYDROCHLORIDE
     Indication: DEPRESSED MOOD
     Route: 048
     Dates: start: 20140225, end: 20150907
  7. LIORESAL [Suspect]
     Active Substance: BACLOFEN
     Dosage: 203.36 MCG
     Route: 042
     Dates: start: 20150710, end: 20150710
  8. SALBUTAMOL [Concomitant]
     Active Substance: ALBUTEROL
     Indication: ASTHMA
     Dosage: 100 MCG PRN
     Route: 055
     Dates: start: 20110719
  9. SIMVASTATIN. [Concomitant]
     Active Substance: SIMVASTATIN
     Indication: HYPERLIPIDAEMIA
     Route: 048
     Dates: start: 20090528
  10. TIZANIDINE. [Concomitant]
     Active Substance: TIZANIDINE
     Indication: MUSCLE SPASTICITY
     Route: 048
     Dates: start: 20150714, end: 20150715
  11. LIORESAL [Suspect]
     Active Substance: BACLOFEN
     Dosage: 87.67 MCG
     Route: 042
     Dates: start: 20150626, end: 20150626
  12. BACLOFEN. [Concomitant]
     Active Substance: BACLOFEN
     Indication: MUSCLE SPASTICITY
     Dosage: 10 MG BID
     Route: 048
     Dates: start: 20150720, end: 20150722
  13. LIORESAL [Suspect]
     Active Substance: BACLOFEN
     Dosage: 76.18 MCG
     Route: 042
     Dates: start: 20150623, end: 20150623
  14. LIORESAL [Suspect]
     Active Substance: BACLOFEN
     Dosage: 615.5 MCG
     Route: 042
     Dates: start: 20150723, end: 20150723
  15. FLUTICASONE [Concomitant]
     Active Substance: FLUTICASONE\FLUTICASONE PROPIONATE
     Indication: ASTHMA
     Dosage: 500 MCG BID
     Route: 055
     Dates: start: 20110719
  16. TIZANIDINE. [Concomitant]
     Active Substance: TIZANIDINE
     Indication: MUSCLE SPASTICITY
     Dosage: 12 MG TID
     Route: 048
     Dates: start: 20110917, end: 20150713
  17. IBUPROFEN. [Concomitant]
     Active Substance: IBUPROFEN
     Indication: ANALGESIC THERAPY
     Dosage: 200 MG PRN
     Route: 048
     Dates: start: 20150615, end: 20150616
  18. TIZANIDINE. [Concomitant]
     Active Substance: TIZANIDINE
     Indication: MUSCLE SPASTICITY
     Route: 048
     Dates: start: 20150717, end: 20150720
  19. LIORESAL [Suspect]
     Active Substance: BACLOFEN
     Dosage: 57.5 MCG
     Route: 042
     Dates: start: 20150616, end: 20150616
  20. LIORESAL [Suspect]
     Active Substance: BACLOFEN
     Dosage: 66.19 MCG
     Route: 042
     Dates: start: 20150619, end: 20150619
  21. LIORESAL [Suspect]
     Active Substance: BACLOFEN
     Dosage: 133.14 MCG
     Route: 042
     Dates: start: 20150706, end: 20150706
  22. LIORESAL [Suspect]
     Active Substance: BACLOFEN
     Dosage: 353.36 MCG
     Route: 042
     Dates: start: 20150717, end: 20150717
  23. SENNA [Concomitant]
     Active Substance: SENNA LEAF\SENNOSIDES\SENNOSIDES A AND B
     Indication: CONSTIPATION
     Dosage: 7.5 MG PRN
     Route: 048
     Dates: start: 20110818
  24. BACLOFEN. [Concomitant]
     Active Substance: BACLOFEN
     Indication: MUSCLE SPASTICITY
     Route: 048
     Dates: start: 20110617, end: 20150713
  25. PARACETAMOL [Concomitant]
     Active Substance: ACETAMINOPHEN
     Indication: ANALGESIC THERAPY
     Dosage: 1000 MCG QID
     Route: 048
     Dates: start: 20110719
  26. LIORESAL [Suspect]
     Active Substance: BACLOFEN
     Dosage: 115.88 MCG
     Route: 042
     Dates: start: 20150703, end: 20150703
  27. LIORESAL [Suspect]
     Active Substance: BACLOFEN
     Dosage: 267.82 MCG
     Route: 042
     Dates: start: 20150714, end: 20150714
  28. LIDOCAINE. [Concomitant]
     Active Substance: LIDOCAINE
     Indication: ANALGESIC THERAPY
     Dates: start: 20150616, end: 20150619
  29. LIORESAL [Suspect]
     Active Substance: BACLOFEN
     Dosage: 153.36 MCG
     Route: 042
     Dates: start: 20150707, end: 20150707
  30. TIZANIDINE. [Concomitant]
     Active Substance: TIZANIDINE
     Indication: MUSCLE SPASTICITY
     Route: 048
     Dates: start: 20150722, end: 20150723
  31. LIORESAL [Suspect]
     Active Substance: BACLOFEN
     Dosage: 306.71 MCG
     Route: 042
     Dates: start: 20150715, end: 20150715
  32. ASPIRIN. [Concomitant]
     Active Substance: ASPIRIN
     Indication: CEREBROVASCULAR ACCIDENT
     Route: 048
     Dates: start: 20100112, end: 20150607
  33. TOLTERODINE [Concomitant]
     Active Substance: TOLTERODINE
     Indication: URINARY INCONTINENCE
     Dosage: 2 MG BID
     Route: 048
     Dates: start: 20110611
  34. SALMETEROL [Concomitant]
     Active Substance: SALMETEROL
     Indication: ASTHMA
     Dosage: 50 MCG BID
     Route: 055
     Dates: start: 20110719
  35. BACLOFEN. [Concomitant]
     Active Substance: BACLOFEN
     Indication: MUSCLE SPASTICITY
     Route: 048
     Dates: start: 20150714, end: 20150715
  36. BACLOFEN. [Concomitant]
     Active Substance: BACLOFEN
     Indication: MUSCLE SPASTICITY
     Route: 048
     Dates: start: 20150722, end: 20150723
  37. LIORESAL [Suspect]
     Active Substance: BACLOFEN
     Dosage: 404.94 MCG
     Route: 042
     Dates: start: 20150720, end: 20150720
  38. TIZANIDINE. [Concomitant]
     Active Substance: TIZANIDINE
     Indication: MUSCLE SPASTICITY
     Route: 048
     Dates: start: 20150720, end: 20150722
  39. BACLOFEN. [Concomitant]
     Active Substance: BACLOFEN
     Indication: MUSCLE SPASTICITY
     Route: 048
     Dates: start: 20150715, end: 20150717
  40. MORPHINE SULFATE. [Concomitant]
     Active Substance: MORPHINE SULFATE
     Indication: ANALGESIC THERAPY
     Dosage: 10 MG PRN
     Route: 048
     Dates: start: 20150614, end: 20150615
  41. LIORESAL [Suspect]
     Active Substance: BACLOFEN
     Dosage: 100.8 MCG
     Route: 042
     Dates: start: 20150630, end: 20150630
  42. LIORESAL [Suspect]
     Active Substance: BACLOFEN
     Dosage: 233.5 MCG
     Route: 042
     Dates: start: 20150713, end: 20150713
  43. LIORESAL [Suspect]
     Active Substance: BACLOFEN
     Dosage: 535.6 MCG
     Route: 042
     Dates: start: 20150722, end: 20150722
  44. FOLIC ACID. [Concomitant]
     Active Substance: FOLIC ACID
     Indication: FOLATE DEFICIENCY
     Route: 048
     Dates: start: 20110719
  45. LIORESAL [Suspect]
     Active Substance: BACLOFEN
     Dosage: 176.68 MCG
     Route: 042
     Dates: start: 20150708, end: 20150708
  46. VITAMIN-B-KOMPLEX [Concomitant]
     Indication: VITAMIN B COMPLEX DEFICIENCY
     Dosage: ONE TAB
     Route: 048
     Dates: start: 20110719
  47. CITALOPRAM HYDROCHLORIDE [Concomitant]
     Active Substance: CITALOPRAM HYDROCHLORIDE
     Indication: DEPRESSED MOOD
     Route: 048
     Dates: start: 20150908

REACTIONS (3)
  - Productive cough [Recovered/Resolved]
  - Upper respiratory tract infection [Recovered/Resolved]
  - Wheezing [Recovered/Resolved]

NARRATIVE: CASE EVENT DATE: 20151028
